FAERS Safety Report 23875736 (Version 1)
Quarter: 2024Q2

REPORT INFORMATION
  Report Type: Other
  Country: JO (occurrence: JO)
  Receive Date: 20240520
  Receipt Date: 20240520
  Transmission Date: 20240715
  Serious: Yes (Other)
  Sender: FDA-Public Use
  Company Number: JO-B.Braun Medical Inc.-2157213

PATIENT
  Age: 36 Year
  Sex: Female
  Weight: 143.30 kg

DRUGS (2)
  1. MANNITOL [Suspect]
     Active Substance: MANNITOL
     Indication: Chemotherapy
  2. CISPLATIN [Suspect]
     Active Substance: CISPLATIN

REACTIONS (4)
  - Gastrointestinal toxicity [Recovered/Resolved]
  - Off label use [Recovered/Resolved]
  - Urinary tract toxicity [Recovered/Resolved]
  - Reproductive toxicity [Recovered/Resolved]
